FAERS Safety Report 17706852 (Version 1)
Quarter: 2020Q2

REPORT INFORMATION
  Report Type: Spontaneous
  Country: RU (occurrence: RU)
  Receive Date: 20200424
  Receipt Date: 20200424
  Transmission Date: 20200714
  Serious: Yes (Other)
  Sender: FDA-Public Use
  Company Number: RU-009507513-2003RUS004070

PATIENT
  Sex: Male

DRUGS (4)
  1. RIBAVIRIN. [Suspect]
     Active Substance: RIBAVIRIN
     Indication: CHRONIC HEPATITIS C
     Dosage: UNK
     Route: 048
  2. PEGINTERFERON (UNSPECIFIED) [Suspect]
     Active Substance: PEGINTERFERON ALFA-2A OR PEGINTERFERON ALFA-2B
     Indication: CHRONIC HEPATITIS C
     Dosage: UNK
  3. NARLAPREVIR [Concomitant]
     Active Substance: NARLAPREVIR
     Indication: CHRONIC HEPATITIS C
     Dosage: 200 MILLIGRAM ONCE A DAY
  4. RITONAVIR. [Concomitant]
     Active Substance: RITONAVIR
     Indication: CHRONIC HEPATITIS C
     Dosage: 100 MILLIGRAM A DAY

REACTIONS (1)
  - Lymphoproliferative disorder [Unknown]
